FAERS Safety Report 22217598 (Version 2)
Quarter: 2023Q2

REPORT INFORMATION
  Report Type: Spontaneous
  Country: PL (occurrence: PL)
  Receive Date: 20230417
  Receipt Date: 20230509
  Transmission Date: 20230722
  Serious: Yes (Hospitalization, Other)
  Sender: FDA-Public Use
  Company Number: PL-002147023-NVSC2021PL140813

PATIENT
  Age: 62 Year
  Sex: Male
  Weight: 98 kg

DRUGS (56)
  1. METFORMIN HYDROCHLORIDE [Suspect]
     Active Substance: METFORMIN HYDROCHLORIDE
     Indication: Product used for unknown indication
     Dosage: 850 MG, TID
  2. METFORMIN HYDROCHLORIDE [Suspect]
     Active Substance: METFORMIN HYDROCHLORIDE
     Dosage: 2550 MG, QD
  3. PANTOPRAZOLE SODIUM [Suspect]
     Active Substance: PANTOPRAZOLE SODIUM
     Indication: Helicobacter gastritis
     Dosage: 20 MG, QD (IN THE MORNING)
     Route: 065
  4. PANTOPRAZOLE SODIUM [Suspect]
     Active Substance: PANTOPRAZOLE SODIUM
     Dosage: 2X40 MG
  5. PANTOPRAZOLE SODIUM [Suspect]
     Active Substance: PANTOPRAZOLE SODIUM
     Dosage: 2X40 MG
  6. ASPIRIN [Suspect]
     Active Substance: ASPIRIN
     Indication: Carotid arteriosclerosis
     Dosage: 75 MG
     Route: 065
  7. ASPIRIN [Suspect]
     Active Substance: ASPIRIN
     Indication: Postoperative care
     Dosage: (IN THE EVENING)
  8. ASPIRIN [Suspect]
     Active Substance: ASPIRIN
     Indication: Hypertension
     Dosage: 75 MILLIGRAM, QD
  9. RAMIPRIL [Suspect]
     Active Substance: RAMIPRIL
     Indication: Coronary artery disease
     Dosage: 10 MG
  10. RAMIPRIL [Suspect]
     Active Substance: RAMIPRIL
     Indication: Cardiac failure
     Dosage: 10 MILLIGRAM
  11. RAMIPRIL [Suspect]
     Active Substance: RAMIPRIL
     Dosage: UNK
  12. BISOPROLOL FUMARATE [Suspect]
     Active Substance: BISOPROLOL FUMARATE
     Indication: Coronary artery disease
     Dosage: 8 MG
  13. BISOPROLOL FUMARATE [Suspect]
     Active Substance: BISOPROLOL FUMARATE
     Indication: Cardiac failure
     Dosage: UNK
  14. ESOMEPRAZOLE [Suspect]
     Active Substance: ESOMEPRAZOLE
     Indication: Renal failure
     Dosage: 20 MG
  15. ESOMEPRAZOLE [Suspect]
     Active Substance: ESOMEPRAZOLE
     Indication: Antiplatelet therapy
     Dosage: 20 MG
  16. ESOMEPRAZOLE [Suspect]
     Active Substance: ESOMEPRAZOLE
     Indication: Postoperative care
  17. AMLODIPINE\RAMIPRIL [Suspect]
     Active Substance: AMLODIPINE\RAMIPRIL
     Indication: Cardiac failure
     Dosage: 10 MG
  18. AMLODIPINE\RAMIPRIL [Suspect]
     Active Substance: AMLODIPINE\RAMIPRIL
     Indication: Coronary artery disease
  19. CLOPIDOGREL BISULFATE [Suspect]
     Active Substance: CLOPIDOGREL BISULFATE
     Indication: Product used for unknown indication
     Dosage: 75 MG
  20. CLOPIDOGREL BISULFATE [Suspect]
     Active Substance: CLOPIDOGREL BISULFATE
     Indication: Postoperative care
     Dosage: 75 MG
  21. ROSUVASTATIN CALCIUM [Suspect]
     Active Substance: ROSUVASTATIN CALCIUM
     Indication: Hypertension
     Dosage: 40 MG
  22. ROSUVASTATIN CALCIUM [Suspect]
     Active Substance: ROSUVASTATIN CALCIUM
     Indication: Carotid arteriosclerosis
  23. BISOPROLOL [Suspect]
     Active Substance: BISOPROLOL
     Indication: Cardiac failure
     Dosage: UNK
  24. BISOPROLOL [Suspect]
     Active Substance: BISOPROLOL
     Indication: Coronary artery disease
     Dosage: 7.5 MG
  25. BISOPROLOL [Suspect]
     Active Substance: BISOPROLOL
     Dosage: 8 MG
  26. CLOPIDOGREL HYDROCHLORIDE [Concomitant]
     Active Substance: CLOPIDOGREL HYDROCHLORIDE
     Indication: Product used for unknown indication
     Dosage: UNK
  27. CLOPIDOGREL HYDROCHLORIDE [Concomitant]
     Active Substance: CLOPIDOGREL HYDROCHLORIDE
     Dosage: UNK
  28. HYDROCHLOROTHIAZIDE [Suspect]
     Active Substance: HYDROCHLOROTHIAZIDE
     Indication: Product used for unknown indication
  29. HYDROCHLOROTHIAZIDE [Suspect]
     Active Substance: HYDROCHLOROTHIAZIDE
     Dosage: 12.5 MG, QD
  30. FLUTICASONE PROPIONATE\SALMETEROL XINAFOATE [Suspect]
     Active Substance: FLUTICASONE PROPIONATE\SALMETEROL XINAFOATE
     Indication: Product used for unknown indication
     Dosage: 2 DF
     Route: 055
  31. TRIMETAZIDINE DIHYDROCHLORIDE [Suspect]
     Active Substance: TRIMETAZIDINE DIHYDROCHLORIDE
     Indication: Product used for unknown indication
     Dosage: 40 MG, QD
  32. TELMISARTAN [Suspect]
     Active Substance: TELMISARTAN
     Indication: Product used for unknown indication
     Dosage: 80 MG, QD
  33. CARVEDILOL [Suspect]
     Active Substance: CARVEDILOL
     Indication: Product used for unknown indication
  34. CARVEDILOL [Suspect]
     Active Substance: CARVEDILOL
     Dosage: 25 MG
  35. LINAGLIPTIN [Suspect]
     Active Substance: LINAGLIPTIN
     Indication: Product used for unknown indication
  36. CLOPIDOGREL BISULFATE [Suspect]
     Active Substance: CLOPIDOGREL BISULFATE
     Indication: Product used for unknown indication
  37. ESOMEPRAZOLE [Concomitant]
     Active Substance: ESOMEPRAZOLE
     Indication: Renal failure
  38. ESOMEPRAZOLE [Concomitant]
     Active Substance: ESOMEPRAZOLE
     Indication: Antiplatelet therapy
  39. ESOMEPRAZOLE [Concomitant]
     Active Substance: ESOMEPRAZOLE
     Indication: Postoperative care
  40. ESOMEPRAZOLE [Concomitant]
     Active Substance: ESOMEPRAZOLE
     Indication: Product used for unknown indication
  41. METFORMIN [Suspect]
     Active Substance: METFORMIN HYDROCHLORIDE
     Indication: Product used for unknown indication
     Dosage: 850 MG, TID
  42. METFORMIN [Suspect]
     Active Substance: METFORMIN HYDROCHLORIDE
     Dosage: 2550 MG, QD
  43. PANTOPRAZOLE [Suspect]
     Active Substance: PANTOPRAZOLE
     Indication: Product used for unknown indication
     Dosage: 20 MG, QD
  44. ROSUVASTATIN [Suspect]
     Active Substance: ROSUVASTATIN
     Indication: Carotid arteriosclerosis
     Dosage: 40 MG
  45. LINAGLIPTIN [Suspect]
     Active Substance: LINAGLIPTIN
     Indication: Product used for unknown indication
     Dosage: 5 MG, QD
  46. ROSUVASTATIN [Suspect]
     Active Substance: ROSUVASTATIN
     Indication: Carotid arteriosclerosis
     Dosage: 40 MILLIGRAM
  47. ROSUVASTATIN [Suspect]
     Active Substance: ROSUVASTATIN
     Indication: Hypertension
     Dosage: 10 MG, QD
  48. FENOFIBRATE [Suspect]
     Active Substance: FENOFIBRATE
     Indication: Product used for unknown indication
     Dosage: 215 MG, QD
  49. ASPIRIN [Suspect]
     Active Substance: ASPIRIN
     Indication: Hypertension
     Dosage: 75 MG, QD
  50. FLUTICASONE PROPIONATE\SALMETEROL XINAFOATE [Suspect]
     Active Substance: FLUTICASONE PROPIONATE\SALMETEROL XINAFOATE
     Indication: Product used for unknown indication
     Dosage: 2 DF
     Route: 055
  51. AMLODIPINE BESYLATE [Suspect]
     Active Substance: AMLODIPINE BESYLATE
     Dosage: 10 MG, QD
  52. CARVEDILOL [Suspect]
     Active Substance: CARVEDILOL
     Dosage: 12.5 MILLIGRAM, BID
  53. CARVEDILOL [Suspect]
     Active Substance: CARVEDILOL
     Dosage: 12.5 MG, QD
  54. ESOMEPRAZOLE MAGNESIUM [Suspect]
     Active Substance: ESOMEPRAZOLE MAGNESIUM
     Indication: Renal failure
     Dosage: 20 MG
  55. ESOMEPRAZOLE MAGNESIUM [Suspect]
     Active Substance: ESOMEPRAZOLE MAGNESIUM
     Indication: Antiplatelet therapy
  56. TRIMETAZIDINE [Suspect]
     Active Substance: TRIMETAZIDINE
     Indication: Product used for unknown indication
     Dosage: 40 MG, QD

REACTIONS (52)
  - Mitral valve incompetence [Unknown]
  - Acute kidney injury [Unknown]
  - Chronic kidney disease [Unknown]
  - Intestinal obstruction [Unknown]
  - Helicobacter gastritis [Unknown]
  - Dyspnoea at rest [Unknown]
  - Ventricular hypokinesia [Unknown]
  - Carotid arteriosclerosis [Unknown]
  - Hepatojugular reflux [Unknown]
  - Acute myocardial infarction [Unknown]
  - Carotid artery stenosis [Unknown]
  - Palpitations [Unknown]
  - Occult blood [Unknown]
  - Hyperlipidaemia [Unknown]
  - Anaemia macrocytic [Unknown]
  - Hypotension [Unknown]
  - Syncope [Unknown]
  - Ventricular tachycardia [Unknown]
  - Electrocardiogram QT prolonged [Unknown]
  - Tricuspid valve incompetence [Unknown]
  - Diastolic dysfunction [Unknown]
  - Cardiac failure [Unknown]
  - Supraventricular tachycardia [Unknown]
  - Ventricular arrhythmia [Unknown]
  - Coronary artery disease [Unknown]
  - Angiopathy [Unknown]
  - Aortic valve incompetence [Unknown]
  - Oedema peripheral [Unknown]
  - Left ventricular hypertrophy [Unknown]
  - Cardiomegaly [Unknown]
  - Carotid artery stenosis [Unknown]
  - Pericardial effusion [Unknown]
  - Electrocardiogram Q wave abnormal [Unknown]
  - Asthenia [Unknown]
  - Fatigue [Unknown]
  - Ejection fraction decreased [Unknown]
  - Rales [Unknown]
  - Left ventricular dysfunction [Unknown]
  - Pericardial disease [Unknown]
  - Skin lesion [Unknown]
  - Ill-defined disorder [Unknown]
  - Pulmonary valve disease [Unknown]
  - Bundle branch block left [Unknown]
  - Physical examination abnormal [Unknown]
  - Joint swelling [Unknown]
  - Cardiac discomfort [Unknown]
  - Oedema peripheral [Unknown]
  - Systolic dysfunction [Unknown]
  - Aortic valve incompetence [Unknown]
  - Cardiac discomfort [Unknown]
  - Mitral valve disease [Unknown]
  - Stenosis [Unknown]

NARRATIVE: CASE EVENT DATE: 20190918
